FAERS Safety Report 12969083 (Version 1)
Quarter: 2016Q4

REPORT INFORMATION
  Report Type: Spontaneous
  Country: US (occurrence: US)
  Receive Date: 20161123
  Receipt Date: 20161123
  Transmission Date: 20170207
  Serious: Yes (Other)
  Sender: FDA-Public Use
  Company Number: None

PATIENT
  Age: 6 Year
  Sex: Male

DRUGS (1)
  1. EPIPEN JR [Suspect]
     Active Substance: EPINEPHRINE

REACTIONS (5)
  - Injection site laceration [None]
  - Device malfunction [None]
  - Aggression [None]
  - Injection site erosion [None]
  - Patient uncooperative [None]

NARRATIVE: CASE EVENT DATE: 20160512
